FAERS Safety Report 6518160-5 (Version None)
Quarter: 2009Q4

REPORT INFORMATION
  Report Type: 
  Country: None (occurrence: None)
  Receive Date: 20091223
  Receipt Date: 20091223
  Transmission Date: 20100525
  Serious: Yes (Other)
  Sender: FDA-Public Use
  Company Number: None

PATIENT
  Age: 52 Year
  Sex: Male
  Weight: 36.9228 kg

DRUGS (1)
  1. RELISTOR [Suspect]
     Indication: ILEUS
     Dosage: 12MG Q48H SQ
     Route: 058
     Dates: start: 20091222, end: 20091222

REACTIONS (3)
  - CHILLS [None]
  - DYSPNOEA [None]
  - TACHYCARDIA [None]
